FAERS Safety Report 25087638 (Version 1)
Quarter: 2025Q1

REPORT INFORMATION
  Report Type: Spontaneous
  Country: US (occurrence: US)
  Receive Date: 20250318
  Receipt Date: 20250318
  Transmission Date: 20250409
  Serious: No
  Sender: APOTEX
  Company Number: US-APOTEX-2025AP003024

PATIENT
  Age: 60 Year
  Sex: Male

DRUGS (1)
  1. PREGABALIN [Suspect]
     Active Substance: PREGABALIN
     Indication: Hiccups
     Dosage: 75 MILLIGRAM, Q.6H
     Route: 065

REACTIONS (2)
  - Brain fog [Recovering/Resolving]
  - Somnolence [Recovering/Resolving]
